FAERS Safety Report 4704527-4 (Version None)
Quarter: 2005Q2

REPORT INFORMATION
  Report Type: 
  Country: None (occurrence: None)
  Receive Date: 20050630
  Receipt Date: 20050527
  Transmission Date: 20051028
  Serious: Yes (Hospitalization)
  Sender: FDA-Public Use
  Company Number: GB-AMGEN-UK136024

PATIENT
  Sex: Male

DRUGS (2)
  1. NEUPOGEN [Suspect]
     Indication: AGRANULOCYTOSIS
     Route: 058
     Dates: start: 20040802
  2. LENOGRASTIM [Concomitant]
     Route: 065

REACTIONS (8)
  - CONTUSION [None]
  - FEBRILE NEUTROPENIA [None]
  - INFUSION SITE ERYTHEMA [None]
  - OEDEMA PERIPHERAL [None]
  - RASH [None]
  - RASH PRURITIC [None]
  - SWELLING [None]
  - URTICARIA [None]
